FAERS Safety Report 6917938-3 (Version None)
Quarter: 2010Q3

REPORT INFORMATION
  Report Type: 
  Country: None (occurrence: None)
  Receive Date: 20100810
  Receipt Date: 20090903
  Transmission Date: 20110219
  Serious: No
  Sender: FDA-Public Use
  Company Number: US-PFIZER INC-2009238941

PATIENT
  Sex: Male

DRUGS (2)
  1. TOVIAZ [Suspect]
     Dosage: UNK
  2. UROXATRAL [Suspect]
     Dosage: UNK

REACTIONS (2)
  - INCONTINENCE [None]
  - LABELLED DRUG-DISEASE INTERACTION MEDICATION ERROR [None]
